FAERS Safety Report 16281404 (Version 1)
Quarter: 2019Q2

REPORT INFORMATION
  Report Type: Spontaneous
  Country: GB (occurrence: GB)
  Receive Date: 20190507
  Receipt Date: 20190507
  Transmission Date: 20190711
  Serious: Yes (Other)
  Sender: FDA-Public Use
  Company Number: GB-ASTRAZENECA-2019SE66005

PATIENT
  Sex: Female

DRUGS (1)
  1. FOBUMIX EASYHALER [Suspect]
     Active Substance: BUDESONIDE\FORMOTEROL FUMARATE
     Indication: PRODUCT USED FOR UNKNOWN INDICATION
     Route: 055

REACTIONS (4)
  - Lip pain [Recovered/Resolved]
  - Mouth ulceration [Recovered/Resolved]
  - Product substitution issue [Unknown]
  - Product complaint [Unknown]
